FAERS Safety Report 5510161-9 (Version None)
Quarter: 2007Q4

REPORT INFORMATION
  Report Type: 
  Country: None (occurrence: None)
  Receive Date: 20071108
  Receipt Date: 20071107
  Transmission Date: 20080405
  Serious: Yes (Other)
  Sender: FDA-Public Use
  Company Number: AU-BRISTOL-MYERS SQUIBB COMPANY-13973441

PATIENT
  Age: 64 Year
  Sex: Male
  Weight: 78 kg

DRUGS (5)
  1. PRAVASTATIN [Suspect]
     Route: 048
     Dates: start: 20060213, end: 20060221
  2. AVANZA [Concomitant]
  3. NOTEN [Concomitant]
  4. TEMAZE [Concomitant]
  5. PROGOUT [Concomitant]

REACTIONS (2)
  - DEPRESSED MOOD [None]
  - SUICIDAL IDEATION [None]
